FAERS Safety Report 4730656-5 (Version None)
Quarter: 2005Q3

REPORT INFORMATION
  Report Type: 
  Country: None (occurrence: None)
  Receive Date: 20050725
  Receipt Date: 20050303
  Transmission Date: 20060218
  Serious: No
  Sender: FDA-Public Use
  Company Number: USA050392315

PATIENT
  Age: 13 Year
  Sex: Male
  Weight: 83 kg

DRUGS (1)
  1. STRATTERA [Suspect]
     Dosage: 40 MG/2 DAY
     Dates: start: 20040504

REACTIONS (1)
  - WEIGHT INCREASED [None]
